FAERS Safety Report 6589665-6 (Version None)
Quarter: 2010Q1

REPORT INFORMATION
  Report Type: 
  Country: None (occurrence: None)
  Receive Date: 20100219
  Receipt Date: 20100217
  Transmission Date: 20100710
  Serious: No
  Sender: FDA-Public Use
  Company Number: US-ASTRAZENECA-2009UW20475

PATIENT
  Age: 46 Year
  Sex: Female
  Weight: 74.8 kg

DRUGS (12)
  1. SEROQUEL [Suspect]
     Indication: SLEEP DISORDER
     Route: 048
     Dates: start: 20050101, end: 20070101
  2. SEROQUEL [Suspect]
     Indication: DEPRESSION
     Route: 048
     Dates: start: 20050101, end: 20070101
  3. TRILEPTAL [Concomitant]
     Indication: DEPRESSION
     Dates: start: 20030101, end: 20050101
  4. LEXAPRO [Concomitant]
     Indication: DEPRESSION
     Dates: start: 20060101, end: 20060101
  5. KLONOPIN [Concomitant]
     Indication: DEPRESSION
  6. ZOLOFT [Concomitant]
     Indication: DEPRESSION
  7. XANAX [Concomitant]
     Indication: DEPRESSION
     Dates: start: 20070101
  8. CYMBALTA [Concomitant]
     Indication: DEPRESSION
  9. LAMICTAL [Concomitant]
     Indication: DEPRESSION
  10. GLUCOPHAGE [Concomitant]
     Indication: TYPE 2 DIABETES MELLITUS
     Dates: start: 20061201
  11. GLUCOPHAGE [Concomitant]
     Indication: HYPERGLYCAEMIA
     Dates: start: 20061201
  12. GEODON [Concomitant]

REACTIONS (3)
  - BLOOD CHOLESTEROL INCREASED [None]
  - HYPERLIPIDAEMIA [None]
  - TYPE 2 DIABETES MELLITUS [None]
